FAERS Safety Report 9677096 (Version 3)
Quarter: 2013Q4

REPORT INFORMATION
  Report Type: Report from Study
  Country: BR (occurrence: BR)
  Receive Date: 20131108
  Receipt Date: 20131202
  Transmission Date: 20140711
  Serious: Yes (Disabling, Other)
  Sender: FDA-Public Use
  Company Number: BR-ROCHE-724007

PATIENT
  Age: 46 Year
  Sex: Female
  Weight: 68 kg

DRUGS (16)
  1. MABTHERA [Suspect]
     Indication: RHEUMATOID ARTHRITIS
     Dosage: FORM: INFUSION, ADDITIONAL INDICATION: LUPUS
     Route: 065
     Dates: start: 2008, end: 20110401
  2. PURAN T4 [Concomitant]
     Route: 065
  3. OMEPRAZOLE [Concomitant]
     Route: 065
  4. PREDNISONE [Concomitant]
     Route: 065
  5. AMITRIPTYLINE [Concomitant]
     Route: 065
  6. CAPTOPRIL [Concomitant]
     Route: 065
  7. HYDROCHLOROTHIAZIDE [Concomitant]
     Route: 065
  8. SERTRALINE [Concomitant]
     Indication: DEPRESSION
     Route: 065
  9. LEFLUNOMIDE [Concomitant]
     Route: 065
  10. HYDROXYCHLOROQUINE [Concomitant]
     Route: 065
  11. DIAZEPAM [Concomitant]
     Route: 065
  12. RIVOTRIL [Concomitant]
     Route: 065
  13. METHOTREXATE [Concomitant]
     Route: 065
  14. FOLIC ACID [Concomitant]
  15. ATORVASTATIN [Concomitant]
     Route: 065
  16. PARACETAMOL [Concomitant]
     Route: 065

REACTIONS (11)
  - Musculoskeletal deformity [Not Recovered/Not Resolved]
  - Abasia [Unknown]
  - Wound [Recovered/Resolved]
  - Impetigo [Recovered/Resolved]
  - Therapy responder [Recovered/Resolved]
  - Arthritis [Recovering/Resolving]
  - Oral herpes [Recovered/Resolved]
  - Pain [Unknown]
  - Hand deformity [Not Recovered/Not Resolved]
  - Foot deformity [Not Recovered/Not Resolved]
  - Pain [Not Recovered/Not Resolved]
